FAERS Safety Report 8467300 (Version 4)
Quarter: 2013Q3

REPORT INFORMATION
  Report Type: Report from Study
  Country: FR (occurrence: FR)
  Receive Date: 20120320
  Receipt Date: 20130806
  Transmission Date: 20140515
  Serious: Yes (Hospitalization)
  Sender: FDA-Public Use
  Company Number: FR-SANOFI-AVENTIS-2012SA015466

PATIENT
  Age: 61 Year
  Sex: Male
  Weight: 101 kg

DRUGS (4)
  1. CABAZITAXEL [Suspect]
     Indication: PROSTATE CANCER METASTATIC
     Route: 042
     Dates: start: 20120105, end: 20120105
  2. CABAZITAXEL [Suspect]
     Indication: PROSTATE CANCER METASTATIC
     Route: 042
     Dates: start: 20120216, end: 20120216
  3. PREDNISONE [Suspect]
     Indication: PROSTATE CANCER METASTATIC
     Route: 048
     Dates: start: 20120105, end: 20120225
  4. PARACETAMOL [Concomitant]
     Route: 048
     Dates: start: 201201

REACTIONS (1)
  - Urinary retention [Recovered/Resolved]
